FAERS Safety Report 5941665-2 (Version None)
Quarter: 2008Q4

REPORT INFORMATION
  Report Type: 
  Country: None (occurrence: None)
  Receive Date: 20081104
  Receipt Date: 20081104
  Transmission Date: 20090506
  Serious: Yes (Life-Threatening, Hospitalization)
  Sender: FDA-Public Use
  Company Number: None

PATIENT
  Age: 54 Year
  Sex: Male
  Weight: 114 kg

DRUGS (1)
  1. WARFARIN SODIUM [Suspect]
     Indication: COAGULATION FACTOR DEFICIENCY
     Dosage: 6 MG EVERY DAY PO
     Route: 048
     Dates: start: 19980715

REACTIONS (8)
  - ELECTROCARDIOGRAM QT PROLONGED [None]
  - FALL [None]
  - HAEMOTHORAX [None]
  - HYPOKALAEMIA [None]
  - INTERNATIONAL NORMALISED RATIO INCREASED [None]
  - MEDIASTINAL HAEMORRHAGE [None]
  - RESPIRATORY DEPRESSION [None]
  - SYNCOPE [None]
